FAERS Safety Report 10331125 (Version 2)
Quarter: 2014Q3

REPORT INFORMATION
  Report Type: Spontaneous
  Country: US (occurrence: US)
  Receive Date: 20140722
  Receipt Date: 20140804
  Transmission Date: 20150326
  Serious: Yes (Life-Threatening)
  Sender: FDA-Public Use
  Company Number: US-ROCHE-1438347

PATIENT
  Age: 27 Year
  Sex: Female
  Weight: 63.11 kg

DRUGS (4)
  1. XOLAIR [Suspect]
     Active Substance: OMALIZUMAB
     Indication: URTICARIA CHRONIC
     Route: 058
     Dates: start: 20140528, end: 20140621
  2. SINGULAIR [Concomitant]
     Active Substance: MONTELUKAST SODIUM
     Indication: URTICARIA
     Route: 048
     Dates: start: 20140331
  3. HYDROXYZINE [Concomitant]
     Active Substance: HYDROXYZINE\HYDROXYZINE HYDROCHLORIDE
     Indication: URTICARIA
     Dosage: EVERY BED TIME
     Route: 048
     Dates: start: 20140331
  4. ALVESCO [Concomitant]
     Active Substance: CICLESONIDE
     Indication: ASTHMA
     Route: 055
     Dates: start: 20140428

REACTIONS (2)
  - Ovarian haemorrhage [Recovering/Resolving]
  - Ovarian rupture [Recovering/Resolving]

NARRATIVE: CASE EVENT DATE: 20140624
